FAERS Safety Report 5742689-0 (Version None)
Quarter: 2008Q2

REPORT INFORMATION
  Report Type: 
  Country: None (occurrence: None)
  Receive Date: 20080519
  Receipt Date: 20080513
  Transmission Date: 20081010
  Serious: Yes (Other)
  Sender: FDA-Public Use
  Company Number: A0728384A

PATIENT
  Age: 62 Year
  Sex: Male

DRUGS (2)
  1. ACYCLOVIR SODIUM [Suspect]
     Indication: HERPES ZOSTER
     Route: 065
  2. VALTREX [Suspect]
     Indication: HERPES ZOSTER
     Dosage: 1000MG THREE TIMES PER DAY
     Route: 048

REACTIONS (12)
  - BODY TEMPERATURE DECREASED [None]
  - CHEST PAIN [None]
  - COUGH [None]
  - DRUG INEFFECTIVE [None]
  - DYSPNOEA [None]
  - FACIAL PAIN [None]
  - FATIGUE [None]
  - HERPES VIRUS INFECTION [None]
  - ILL-DEFINED DISORDER [None]
  - MALAISE [None]
  - PNEUMONIA VIRAL [None]
  - THERAPEUTIC RESPONSE UNEXPECTED [None]
